FAERS Safety Report 8862635 (Version 4)
Quarter: 2014Q1

REPORT INFORMATION
  Report Type: Spontaneous
  Country: US (occurrence: US)
  Receive Date: 20121026
  Receipt Date: 20140221
  Transmission Date: 20141002
  Serious: Yes (Other)
  Sender: FDA-Public Use
  Company Number: US-009507513-1210USA009574

PATIENT
  Sex: Female
  Weight: 44.44 kg

DRUGS (3)
  1. FOSAMAX [Suspect]
     Indication: OSTEOPENIA
     Dosage: 10 MG, QD
     Route: 048
     Dates: start: 199910, end: 200110
  2. FOSAMAX [Suspect]
     Dosage: 70 MG, QW
     Route: 048
     Dates: start: 200110
  3. ALENDRONATE SODIUM [Suspect]
     Indication: OSTEOPENIA
     Dosage: 70 MG, QW
     Route: 048
     Dates: start: 200802, end: 200910

REACTIONS (18)
  - Femur fracture [Unknown]
  - Bone graft [Unknown]
  - Arthroscopic surgery [Unknown]
  - Patella fracture [Unknown]
  - Patella fracture [Unknown]
  - Patella fracture [Unknown]
  - Rib fracture [Unknown]
  - Bone contusion [Unknown]
  - Muscle atrophy [Unknown]
  - Thoracic spine flattening [Unknown]
  - Lower limb fracture [Unknown]
  - Osteoporosis [Unknown]
  - Arthritis [Unknown]
  - Intervertebral disc degeneration [Unknown]
  - Chronic sinusitis [Unknown]
  - Blood cholesterol increased [Unknown]
  - Total lung capacity decreased [Unknown]
  - Arthralgia [Unknown]
